FAERS Safety Report 6237188-6 (Version None)
Quarter: 2009Q2

REPORT INFORMATION
  Report Type: 
  Country: None (occurrence: None)
  Receive Date: 20090619
  Receipt Date: 20090611
  Transmission Date: 20091009
  Serious: Yes (Other)
  Sender: FDA-Public Use
  Company Number: US-PFIZER INC-2009226987

PATIENT
  Sex: Female

DRUGS (1)
  1. CADUET [Suspect]
     Dosage: UNK

REACTIONS (4)
  - FALL [None]
  - GAIT DISTURBANCE [None]
  - HERPES ZOSTER [None]
  - WRIST FRACTURE [None]
